FAERS Safety Report 21158169 (Version 2)
Quarter: 2022Q3

REPORT INFORMATION
  Report Type: Spontaneous
  Country: IN (occurrence: IN)
  Receive Date: 20220801
  Receipt Date: 20220822
  Transmission Date: 20221027
  Serious: Yes (Other)
  Sender: FDA-Public Use
  Company Number: IN-MEDEXUS PHARMA, INC.-2022MED00318

PATIENT
  Age: 56 Year
  Sex: Female

DRUGS (2)
  1. METHOTREXATE [Suspect]
     Active Substance: METHOTREXATE
     Indication: B-cell lymphoma
     Dosage: MULTIPLE INJECTIONS AT 400 ?G/0.1 ML
  2. METHOTREXATE [Concomitant]
     Active Substance: METHOTREXATE
     Indication: B-cell lymphoma
     Route: 065

REACTIONS (1)
  - Cornea verticillata [Recovered/Resolved]
